FAERS Safety Report 12596547 (Version 2)
Quarter: 2016Q3

REPORT INFORMATION
  Report Type: Spontaneous
  Country: AR (occurrence: AR)
  Receive Date: 20160727
  Receipt Date: 20160802
  Transmission Date: 20161109
  Serious: Yes (Hospitalization, Other)
  Sender: FDA-Public Use
  Company Number: AR-AMGEN-ARGSP2016095805

PATIENT
  Age: 55 Year
  Sex: Male
  Weight: 97 kg

DRUGS (1)
  1. KYPROLIS [Suspect]
     Active Substance: CARFILZOMIB
     Indication: PLASMA CELL MYELOMA
     Dosage: 20 MG/M2, (DAYS 1,2)
     Route: 042
     Dates: start: 20160713, end: 20160714

REACTIONS (13)
  - Blood cholesterol decreased [Unknown]
  - Alanine aminotransferase increased [Unknown]
  - Aspartate aminotransferase increased [Unknown]
  - Blood albumin decreased [Unknown]
  - Blood glucose increased [Unknown]
  - Blood creatinine increased [Unknown]
  - Blood uric acid decreased [Unknown]
  - Hyperthermia [Recovered/Resolved]
  - Hepatotoxicity [Recovering/Resolving]
  - Thrombocytopenia [Not Recovered/Not Resolved]
  - Haemorrhoidal haemorrhage [Unknown]
  - Blood urea increased [Unknown]
  - Blood bilirubin increased [Unknown]

NARRATIVE: CASE EVENT DATE: 20160715
